FAERS Safety Report 4318477-9 (Version None)
Quarter: 2004Q1

REPORT INFORMATION
  Report Type: 
  Country: None (occurrence: None)
  Receive Date: 20040316
  Receipt Date: 20040316
  Transmission Date: 20041129
  Serious: Yes (Death, Life-Threatening, Hospitalization)
  Sender: FDA-Public Use
  Company Number: None

PATIENT
  Sex: Male
  Weight: 98.5 kg

DRUGS (10)
  1. CASODEX [Suspect]
     Indication: PROSTATE CANCER
     Dosage: 50 MG PO OD
     Route: 048
     Dates: start: 20031205, end: 20040201
  2. ZOLADEX [Suspect]
     Indication: PROSTATE CANCER
     Dosage: SUBCUTANEOUS INJECTION 3.6 MG, 10.8 MG
     Route: 058
     Dates: start: 20031205
  3. ZOLADEX [Suspect]
     Indication: PROSTATE CANCER
     Dosage: SUBCUTANEOUS INJECTION 3.6 MG, 10.8 MG
     Route: 058
     Dates: start: 20040121
  4. CHRONOVERA [Concomitant]
  5. WARFARIN SODIUM [Concomitant]
  6. RAMIPRIL [Concomitant]
  7. IBUPROFEN [Concomitant]
  8. LIPITOR [Concomitant]
  9. TRIAZIDE [Concomitant]
  10. ATENOLOL [Concomitant]

REACTIONS (4)
  - COMA [None]
  - FALL [None]
  - LOSS OF CONSCIOUSNESS [None]
  - NAUSEA [None]
